FAERS Safety Report 9466075 (Version 4)
Quarter: 2014Q1

REPORT INFORMATION
  Report Type: Spontaneous
  Country: BR (occurrence: BR)
  Receive Date: 20130820
  Receipt Date: 20140122
  Transmission Date: 20141002
  Serious: Yes (Death, Other)
  Sender: FDA-Public Use
  Company Number: BR-ELI_LILLY_AND_COMPANY-BR201308003275

PATIENT
  Sex: Female
  Weight: 60 kg

DRUGS (17)
  1. CYMBALTA [Suspect]
     Indication: AFFECTIVE DISORDER
     Dosage: 30 MG, QD
     Route: 048
     Dates: start: 2009, end: 201208
  2. CYMBALTA [Suspect]
     Indication: DEPRESSION
     Dosage: 60 MG, EACH MORNING
     Route: 048
     Dates: start: 2009, end: 201208
  3. CYMBALTA [Suspect]
     Indication: NERVOUSNESS
     Dosage: UNK, BID
     Route: 048
     Dates: start: 201301
  4. RIVOTRIL [Concomitant]
     Indication: NERVOUS SYSTEM DISORDER
     Dosage: UNK, UNKNOWN
     Route: 065
  5. PYRIDIUM [Concomitant]
     Indication: URINARY TRACT INFECTION
     Dosage: UNK, UNKNOWN
     Route: 065
  6. PURAN T4 [Concomitant]
     Indication: HYPOTHYROIDISM
     Dosage: UNK, UNKNOWN
     Route: 065
  7. GLIFAGE [Concomitant]
     Indication: BLOOD GLUCOSE
     Dosage: UNK, UNKNOWN
     Route: 065
  8. INSULIN [Concomitant]
     Indication: BLOOD GLUCOSE
     Dosage: UNK, UNKNOWN
     Route: 065
  9. OLMETEC [Concomitant]
     Indication: CARDIAC DISORDER
     Dosage: UNK, UNKNOWN
     Route: 065
  10. ROSUVASTATIN [Concomitant]
     Indication: CARDIAC DISORDER
     Dosage: UNK, UNKNOWN
     Route: 065
  11. ALENIA [Concomitant]
     Indication: PULMONARY EMBOLISM
     Dosage: UNK, UNKNOWN
     Route: 065
  12. MAREVAN [Concomitant]
     Indication: PULMONARY EMBOLISM
     Dosage: UNK, UNKNOWN
     Route: 065
  13. BEROTEC [Concomitant]
     Indication: PULMONARY EMBOLISM
     Dosage: UNK, UNKNOWN
     Route: 065
  14. MIOSAN [Concomitant]
     Indication: PAIN
     Dosage: UNK, UNKNOWN
     Route: 065
  15. CYCLOBENZAPRINE HYDROCHLORIDE [Concomitant]
     Indication: PAIN
     Dosage: UNK, UNKNOWN
     Route: 065
  16. OMEPRAZOLE [Concomitant]
     Indication: DYSPEPSIA
     Dosage: UNK, UNKNOWN
     Route: 065
  17. MELOXICAM [Concomitant]
     Indication: PRODUCT USED FOR UNKNOWN INDICATION
     Dosage: UNK, UNKNOWN
     Route: 065

REACTIONS (11)
  - Infection [Fatal]
  - Malignant peritoneal neoplasm [Unknown]
  - Pelvic fracture [Unknown]
  - Osteonecrosis [Unknown]
  - Upper limb fracture [Unknown]
  - Weight decreased [Unknown]
  - Oral disorder [Unknown]
  - Wrist fracture [Unknown]
  - Hand fracture [Unknown]
  - Clavicle fracture [Unknown]
  - Gait disturbance [Unknown]
